FAERS Safety Report 7509311-4 (Version None)
Quarter: 2011Q2

REPORT INFORMATION
  Report Type: 
  Country: None (occurrence: None)
  Receive Date: 20110527
  Receipt Date: 20110519
  Transmission Date: 20111010
  Serious: Yes (Other)
  Sender: FDA-Public Use
  Company Number: BR-ROCHE-778696

PATIENT
  Sex: Female
  Weight: 63 kg

DRUGS (5)
  1. CLONAZEPAM [Suspect]
     Indication: DEPRESSION
     Route: 048
     Dates: start: 19900101
  2. CLONAZEPAM [Suspect]
     Dosage: ALSO REPORTED AS: 1 MG ONCE A DAY TO UPTO 3 TIMES DAILY IF NEEDED
     Route: 048
     Dates: start: 20070101
  3. SERTRALINE HYDROCHLORIDE [Concomitant]
  4. PUTAN CHEWABLE (FERRUM) [Concomitant]
     Dosage: DRUG: PUTAN T4
  5. CLINFAR [Concomitant]
     Route: 048

REACTIONS (4)
  - OBSESSIVE-COMPULSIVE DISORDER [None]
  - ANXIETY [None]
  - DEPRESSION [None]
  - THYROID DISORDER [None]
